FAERS Safety Report 7788412-X (Version None)
Quarter: 2011Q3

REPORT INFORMATION
  Report Type: 
  Country: None (occurrence: None)
  Receive Date: 20110930
  Receipt Date: 20110921
  Transmission Date: 20111222
  Serious: Yes (Other)
  Sender: FDA-Public Use
  Company Number: JP-CELGENEUS-087-50794-11093097

PATIENT
  Sex: Male
  Weight: 65 kg

DRUGS (17)
  1. MAXIPIME [Concomitant]
     Dosage: 4 GRAM
     Route: 041
     Dates: start: 20110504, end: 20110516
  2. FIRSTCIN [Concomitant]
     Dosage: 2 GRAM
     Route: 041
     Dates: start: 20110530, end: 20110608
  3. MAXIPIME [Concomitant]
     Dosage: 4 GRAM
     Route: 041
     Dates: start: 20110627, end: 20110703
  4. MEROPENEM [Concomitant]
     Dosage: 1 GRAM
     Route: 041
     Dates: start: 20110516, end: 20110529
  5. DIOVAN [Concomitant]
     Dosage: 40 MILLIGRAM
     Route: 048
  6. NEUTROGIN [Concomitant]
     Dosage: 100 MICROGRAM
     Route: 058
     Dates: start: 20110722
  7. LANSOPRAZOLE [Concomitant]
     Dosage: 15 MILLIGRAM
     Route: 048
     Dates: start: 20110429
  8. LEVOFLOXACIN [Concomitant]
     Dosage: 500 MILLIGRAM
     Route: 048
     Dates: start: 20110608, end: 20110630
  9. DIFLUCAN [Concomitant]
     Dosage: 200 MILLIGRAM
     Route: 048
     Dates: start: 20110428
  10. VIDAZA [Suspect]
     Indication: MYELODYSPLASTIC SYNDROME
     Dosage: 75 MILLIGRAM/SQ. METER
     Route: 041
     Dates: start: 20110428, end: 20110505
  11. VIDAZA [Suspect]
     Dosage: 37.5 MILLIGRAM/SQ. METER
     Route: 041
     Dates: start: 20110616, end: 20110623
  12. MEROPENEM [Concomitant]
     Dosage: 1 GRAM
     Route: 041
     Dates: start: 20110704, end: 20110715
  13. PASIL [Concomitant]
     Dosage: 1000 MILLIGRAM
     Route: 041
     Dates: start: 20110715, end: 20110728
  14. MAGMITT [Concomitant]
     Dosage: 990 MILLIGRAM
     Route: 048
     Dates: start: 20110502
  15. TRANSFUSION [Concomitant]
     Route: 041
  16. LEVOFLOXACIN [Concomitant]
     Dosage: 500 MILLIGRAM
     Route: 048
     Dates: start: 20110428, end: 20110511
  17. VANCOMYCIN [Concomitant]
     Dosage: 2 GRAM
     Route: 041
     Dates: start: 20110713, end: 20110726

REACTIONS (1)
  - DERMATITIS [None]
